FAERS Safety Report 15356918 (Version 1)
Quarter: 2018Q4

REPORT INFORMATION
  Report Type: Other
  Country: CA (occurrence: CA)
  Receive Date: 20180906
  Receipt Date: 20180906
  Transmission Date: 20190204
  Serious: Yes (Life-Threatening, Hospitalization)
  Sender: FDA-Public Use
  Company Number: CA-NOSTRUM LABORATORIES, INC.-2054681

PATIENT
  Age: 49 Year
  Sex: Female

DRUGS (1)
  1. BUTALBITAL, ASPIRIN, AND CAFFEINE [Suspect]
     Active Substance: ASPIRIN\BUTALBITAL\CAFFEINE
     Indication: PRODUCT USED FOR UNKNOWN INDICATION
     Route: 048

REACTIONS (5)
  - Peritonitis [Unknown]
  - Gait disturbance [Recovered/Resolved]
  - Large intestine perforation [Unknown]
  - X-ray abnormal [Unknown]
  - Product administration error [Recovered/Resolved]
